FAERS Safety Report 24943603 (Version 2)
Quarter: 2025Q1

REPORT INFORMATION
  Report Type: Report from Study
  Country: US (occurrence: US)
  Receive Date: 20250207
  Receipt Date: 20250211
  Transmission Date: 20250409
  Serious: Yes (Other)
  Sender: NOVARTIS
  Company Number: US-002147023-NVSC2024US194075

PATIENT
  Age: 41 Year
  Sex: Female

DRUGS (1)
  1. KESIMPTA [Suspect]
     Active Substance: OFATUMUMAB
     Indication: Relapsing-remitting multiple sclerosis
     Dosage: 20 MG, QMO
     Route: 058
     Dates: start: 20240607

REACTIONS (12)
  - Glioblastoma multiforme [Unknown]
  - Meningioma [Unknown]
  - Raynaud^s phenomenon [Unknown]
  - Injection site hypersensitivity [Unknown]
  - Memory impairment [Unknown]
  - Nausea [Unknown]
  - Hyperreflexia [Unknown]
  - Disease progression [Unknown]
  - Laryngitis [Unknown]
  - Norovirus infection [Unknown]
  - Illness [Unknown]
  - Dysstasia [Unknown]

NARRATIVE: CASE EVENT DATE: 20240801
